FAERS Safety Report 9362875 (Version 1)
Quarter: 2013Q2

REPORT INFORMATION
  Report Type: Spontaneous
  Country: AU (occurrence: AU)
  Receive Date: 20130624
  Receipt Date: 20130624
  Transmission Date: 20140414
  Serious: Yes (Other)
  Sender: FDA-Public Use
  Company Number: AU-ROCHE-1240311

PATIENT
  Sex: Male

DRUGS (6)
  1. LUCENTIS [Suspect]
     Indication: PRODUCT USED FOR UNKNOWN INDICATION
     Route: 050
  2. PERINDOPRIL [Concomitant]
  3. TRIGLYCERIDES [Concomitant]
  4. ATENOLOL [Concomitant]
  5. FISH OIL [Concomitant]
  6. SELENIUM SULFIDE [Concomitant]

REACTIONS (1)
  - Prostatic specific antigen increased [Unknown]
